FAERS Safety Report 8822438 (Version 2)
Quarter: 2012Q4

REPORT INFORMATION
  Report Type: 
  Country: US (occurrence: US)
  Receive Date: 20121003
  Receipt Date: 20121029
  Transmission Date: 20130627
  Serious: Yes (Death, Other)
  Sender: FDA-Public Use
  Company Number: PHEH2012US019204

PATIENT
  Age: 79 Year
  Sex: Female

DRUGS (12)
  1. RECLAST [Suspect]
     Indication: SENILE OSTEOPOROSIS
     Dosage: 5 mg, yearly
     Route: 042
     Dates: start: 20111101
  2. ALBUTEROL SULFATE [Concomitant]
     Indication: BRONCHITIS
     Dates: start: 20120104
  3. ALPHAGAN [Concomitant]
     Indication: ASTHMA
     Dates: start: 20101117
  4. AZOPT [Concomitant]
     Dates: start: 20110105
  5. CALCIUM CARBONATE [Concomitant]
     Indication: SENILE OSTEOPOROSIS
     Dosage: 3 DF, BID
     Dates: start: 20100630
  6. FUROSEMIDE [Concomitant]
     Dosage: 40 mg, QD
     Dates: start: 20110919
  7. HYDROCODONE [Concomitant]
     Dates: start: 20120319
  8. LUMIGAN [Concomitant]
     Dates: start: 20110302
  9. MORPHINE [Concomitant]
     Dates: start: 20120222
  10. PREDNISONE [Concomitant]
     Indication: POLYMYALGIA RHEUMATICA
     Dosage: 10 mg, QD
  11. XALATAN [Concomitant]
     Dates: start: 20101117
  12. VISION-VITE [Concomitant]
     Dosage: 1 DF, QD
     Dates: start: 20100929

REACTIONS (5)
  - Chronic obstructive pulmonary disease [Fatal]
  - Cardiac failure congestive [Fatal]
  - Pneumonia [Unknown]
  - Asthma [Unknown]
  - Bronchitis [Unknown]
